FAERS Safety Report 8594818-1 (Version None)
Quarter: 2012Q3

REPORT INFORMATION
  Report Type: 
  Country: None (occurrence: None)
  Receive Date: 20120815
  Receipt Date: 20120808
  Transmission Date: 20120928
  Serious: No
  Sender: FDA-Public Use
  Company Number: US-BAYER-2012-082797

PATIENT
  Age: 21 Year
  Sex: Female

DRUGS (2)
  1. GADAVIST [Suspect]
     Indication: SCAN WITH CONTRAST
     Dosage: 5 ML, ONCE
     Dates: start: 20120807, end: 20120807
  2. GADAVIST [Suspect]
     Indication: CONVULSION

REACTIONS (1)
  - NAUSEA [None]
